FAERS Safety Report 8212355-0 (Version None)
Quarter: 2012Q1

REPORT INFORMATION
  Report Type: 
  Country: None (occurrence: None)
  Receive Date: 20120315
  Receipt Date: 20120305
  Transmission Date: 20120608
  Serious: Yes (Hospitalization)
  Sender: FDA-Public Use
  Company Number: GB-MEDIMMUNE-MEDI-0015039

PATIENT
  Sex: Female
  Weight: 3.09 kg

DRUGS (2)
  1. SYNAGIS [Suspect]
     Route: 013
     Dates: start: 20111018, end: 20111110
  2. SYNAGIS [Suspect]
     Route: 013
     Dates: start: 20120208, end: 20120208

REACTIONS (5)
  - PNEUMOTHORAX [None]
  - RESPIRATORY SYNCYTIAL VIRUS INFECTION [None]
  - RESPIRATORY DISTRESS [None]
  - CYANOSIS NEONATAL [None]
  - EXPOSURE TO COMMUNICABLE DISEASE [None]
